FAERS Safety Report 6240379-1 (Version None)
Quarter: 2009Q2

REPORT INFORMATION
  Report Type: 
  Country: None (occurrence: None)
  Receive Date: 20090623
  Receipt Date: 20080808
  Transmission Date: 20091009
  Serious: No
  Sender: FDA-Public Use
  Company Number: US-ASTRAZENECA-2008UW11428

PATIENT
  Age: 52 Year
  Sex: Male
  Weight: 68 kg

DRUGS (4)
  1. PULMICORT FLEXHALER [Suspect]
     Route: 055
     Dates: start: 20080501
  2. VASOTEC [Concomitant]
     Indication: HYPERTENSION
  3. NEXIUM [Concomitant]
     Route: 048
  4. PERCOCET [Concomitant]
     Indication: BACK PAIN

REACTIONS (2)
  - ORAL CANDIDIASIS [None]
  - STOMATITIS [None]
